FAERS Safety Report 23919452 (Version 1)
Quarter: 2024Q2

REPORT INFORMATION
  Report Type: Spontaneous
  Country: US (occurrence: None)
  Receive Date: 20240529
  Receipt Date: 20240529
  Transmission Date: 20240716
  Serious: No
  Sender: FDA-Public Use
  Company Number: None

PATIENT
  Age: 45 Year
  Sex: Female
  Weight: 96.75 kg

DRUGS (5)
  1. GABAPENTIN [Suspect]
     Active Substance: GABAPENTIN
     Indication: Surgery
     Dosage: FREQUENCY : TWICE A DAY;?
     Route: 048
  2. TIROSENT [Concomitant]
  3. MULTI VITAMIN [Concomitant]
  4. VITAMIN D [Concomitant]
     Active Substance: VITAMIN D NOS
  5. PROBIOTICS [Concomitant]

REACTIONS (9)
  - Depression [None]
  - Dizziness [None]
  - Neuralgia [None]
  - Procedural pain [None]
  - Near death experience [None]
  - Hypophagia [None]
  - Hernia repair [None]
  - Suicidal ideation [None]
  - Nerve injury [None]

NARRATIVE: CASE EVENT DATE: 20230225
